FAERS Safety Report 4425130-X (Version None)
Quarter: 2004Q3

REPORT INFORMATION
  Report Type: 
  Country: None (occurrence: None)
  Receive Date: 20040811
  Receipt Date: 20040811
  Transmission Date: 20050211
  Serious: Yes (Hospitalization)
  Sender: FDA-Public Use
  Company Number: None

PATIENT
  Age: 51 Year
  Sex: Male
  Weight: 78 kg

DRUGS (1)
  1. FENTANYL [Suspect]
     Dosage: 75 MCG EVERY 3 DA TRANSDERMAL
     Route: 062
     Dates: start: 20040330, end: 20040402

REACTIONS (2)
  - NAUSEA [None]
  - VOMITING [None]
